FAERS Safety Report 4894400-3 (Version None)
Quarter: 2005Q4

REPORT INFORMATION
  Report Type: 
  Country: None (occurrence: None)
  Receive Date: 20051223
  Receipt Date: 20050901
  Transmission Date: 20060501
  Serious: No
  Sender: FDA-Public Use
  Company Number: 05P-163-0310098-00

PATIENT
  Age: 38 Year
  Sex: Female
  Weight: 107 kg

DRUGS (10)
  1. HUMIRA [Suspect]
     Indication: RHEUMATOID ARTHRITIS
     Dosage: 40 MG, 1 IN 1 WK, SUBCUTANEOUS
     Route: 058
     Dates: start: 20030101
  2. LITHIUM [Concomitant]
  3. LIBRAX [Concomitant]
  4. METFORMIN [Concomitant]
  5. SEASONALE [Concomitant]
  6. HYDROCHLOROTHIAZIDE [Concomitant]
  7. CIMETIDINE [Concomitant]
  8. TRAZODONE [Concomitant]
  9. HYDROCODONE BITARTRATE [Concomitant]
  10. BUPROPION [Concomitant]

REACTIONS (1)
  - INJECTION SITE PAIN [None]
